FAERS Safety Report 4949869-2 (Version None)
Quarter: 2006Q1

REPORT INFORMATION
  Report Type: 
  Country: None (occurrence: None)
  Receive Date: 20060315
  Receipt Date: 20060228
  Transmission Date: 20060701
  Serious: Yes (Death)
  Sender: FDA-Public Use
  Company Number: 2006S1002196

PATIENT
  Age: 55 Year
  Sex: Female

DRUGS (16)
  1. CLOZAPINE [Suspect]
     Indication: SCHIZOPHRENIA
     Dosage: SEE IMAGE
     Route: 048
     Dates: start: 20060101, end: 20060201
  2. CLOZAPINE [Suspect]
     Indication: SCHIZOPHRENIA
     Dosage: SEE IMAGE
     Route: 048
     Dates: start: 20060101, end: 20060201
  3. FLUTICASONE PRIOPIONATE [Concomitant]
  4. SALMETEROL XINAFOATE [Concomitant]
  5. SALBUTAMOL [Concomitant]
  6. ROSIGLITAZONE MALEATE [Concomitant]
  7. VALPROATE SODIUM [Concomitant]
  8. DILTIAZEM [Concomitant]
  9. FOLIC ACID [Concomitant]
  10. FUROSEMIDE [Concomitant]
  11. HALOPERIDOL [Concomitant]
  12. ATORVASTATIN CALCIUM [Concomitant]
  13. INSULIN HUMAN SEMISYNTHETIC/INSULIN ISOPHANE [Concomitant]
  14. HUMAN SEMISYNTHETIC [Concomitant]
  15. CALCIUM ACETATE [Concomitant]
  16. EPOGEN [Concomitant]

REACTIONS (2)
  - GRANULOCYTOPENIA [None]
  - RENAL FAILURE [None]
